FAERS Safety Report 10736021 (Version 2)
Quarter: 2015Q1

REPORT INFORMATION
  Report Type: Spontaneous
  Country: DE (occurrence: DE)
  Receive Date: 20150126
  Receipt Date: 20150219
  Transmission Date: 20150721
  Serious: Yes (Other)
  Sender: FDA-Public Use
  Company Number: DE-JNJFOC-20150113238

PATIENT
  Age: 50 Year
  Sex: Female
  Weight: 124 kg

DRUGS (3)
  1. CIPRALEX [Concomitant]
     Active Substance: ESCITALOPRAM OXALATE
     Indication: PANIC ATTACK
     Route: 065
  2. LYRICA [Concomitant]
     Active Substance: PREGABALIN
     Indication: POLYNEUROPATHY
     Route: 065
  3. REMICADE [Suspect]
     Active Substance: INFLIXIMAB
     Indication: PSORIASIS
     Route: 042
     Dates: start: 200910, end: 20141217

REACTIONS (2)
  - Type 2 diabetes mellitus [Unknown]
  - Monoclonal gammopathy [Not Recovered/Not Resolved]

NARRATIVE: CASE EVENT DATE: 2014
